FAERS Safety Report 14081680 (Version 1)
Quarter: 2017Q4

REPORT INFORMATION
  Report Type: Spontaneous
  Country: PL (occurrence: PL)
  Receive Date: 20171013
  Receipt Date: 20171013
  Transmission Date: 20180321
  Serious: Yes (Other)
  Sender: FDA-Public Use
  Company Number: PL-ASTELLAS-2017US011490

PATIENT
  Age: 2 Year
  Sex: Female
  Weight: 10 kg

DRUGS (5)
  1. CELLCEPT [Concomitant]
     Active Substance: MYCOPHENOLATE MOFETIL\MYCOPHENOLATE MOFETIL HYDROCHLORIDE
     Indication: LIVER TRANSPLANT
     Dosage: UNK UNK, UNKNOWN FREQ.
     Route: 065
     Dates: start: 201603, end: 201605
  2. PROGRAF [Suspect]
     Active Substance: TACROLIMUS\TACROLIMUS ANHYDROUS
     Indication: LIVER TRANSPLANT
     Dosage: DOSES ADAPTED TO LEVEL OF 10NG / ML IN SERUM, TWICE DAILY
     Route: 065
     Dates: start: 20160301, end: 20160511
  3. ADVAGRAF [Suspect]
     Active Substance: TACROLIMUS
     Indication: LIVER TRANSPLANT
     Dosage: 0.75 MG, ONCE DAILY
     Route: 065
     Dates: start: 20160511
  4. ADVAGRAF [Suspect]
     Active Substance: TACROLIMUS
     Dosage: 0.5 MG, TWICE DAILY (IN THE MORNING AND IN THE EVENING)
     Route: 065
  5. ADVAGRAF [Suspect]
     Active Substance: TACROLIMUS
     Route: 065
     Dates: start: 20170515

REACTIONS (6)
  - Immunosuppressant drug level decreased [Unknown]
  - Drug prescribing error [Unknown]
  - Off label use [Unknown]
  - Portal vein occlusion [Unknown]
  - Intentional product misuse [Unknown]
  - Inappropriate schedule of drug administration [Unknown]

NARRATIVE: CASE EVENT DATE: 20160511
